FAERS Safety Report 9380672 (Version 2)
Quarter: 2013Q3

REPORT INFORMATION
  Report Type: Report from Study
  Country: CA (occurrence: CA)
  Receive Date: 20130702
  Receipt Date: 20130716
  Transmission Date: 20140515
  Serious: No
  Sender: FDA-Public Use
  Company Number: CA-JNJFOC-20121213641

PATIENT
  Sex: Female

DRUGS (1)
  1. STELARA [Suspect]
     Indication: EXPOSURE VIA BODY FLUID
     Route: 058
     Dates: start: 201107

REACTIONS (1)
  - Exposure during pregnancy [Not Recovered/Not Resolved]
